FAERS Safety Report 9440433 (Version 2)
Quarter: 2013Q3

REPORT INFORMATION
  Report Type: Spontaneous
  Country: PL (occurrence: PL)
  Receive Date: 20130805
  Receipt Date: 20130813
  Transmission Date: 20140515
  Serious: Yes (Hospitalization, Other)
  Sender: FDA-Public Use
  Company Number: PHHY2013PL081252

PATIENT
  Age: 45 Year
  Sex: Female

DRUGS (1)
  1. DIGOXIN [Suspect]
     Dosage: 100 DF (0.25 MG), UNK

REACTIONS (15)
  - Suicide attempt [Unknown]
  - Toxicity to various agents [Unknown]
  - Conduction disorder [Unknown]
  - Arrhythmia [Unknown]
  - Atrioventricular block first degree [Unknown]
  - Atrioventricular block second degree [Unknown]
  - Atrioventricular block complete [Unknown]
  - Supraventricular extrasystoles [Unknown]
  - Ventricular extrasystoles [Unknown]
  - Nausea [Unknown]
  - Vomiting [Unknown]
  - Psychomotor retardation [Unknown]
  - Headache [Unknown]
  - Dizziness [Unknown]
  - General physical health deterioration [Recovering/Resolving]
